FAERS Safety Report 15551126 (Version 3)
Quarter: 2020Q2

REPORT INFORMATION
  Report Type: Other
  Country: US (occurrence: US)
  Receive Date: 20181025
  Receipt Date: 20200429
  Transmission Date: 20200713
  Serious: Yes (Other)
  Sender: FDA-Public Use
  Company Number: US-INTERCEPT-PMOCA2018001672

PATIENT
  Age: 46 Year
  Sex: Female
  Weight: 79 kg

DRUGS (26)
  1. INJECTAFER [Concomitant]
     Active Substance: FERRIC CARBOXYMALTOSE
  2. PHENERGAN [Concomitant]
     Active Substance: PROMETHAZINE HYDROCHLORIDE
  3. OCALIVA [Suspect]
     Active Substance: OBETICHOLIC ACID
     Indication: PRIMARY BILIARY CHOLANGITIS
     Dosage: 5 MG, 2X/WK
     Route: 048
     Dates: start: 20180315, end: 20180924
  4. ENULOSE [Concomitant]
     Active Substance: LACTULOSE
     Dosage: 30 ML, BID
     Route: 048
     Dates: start: 20180315, end: 20180918
  5. LASIX [Concomitant]
     Active Substance: FUROSEMIDE
     Dosage: 20 UNK, BID
  6. ALDACTONE [Concomitant]
     Active Substance: SPIRONOLACTONE
     Dosage: 50 UNK, QD
  7. PANTOPRAZOLE SODIUM. [Concomitant]
     Active Substance: PANTOPRAZOLE SODIUM
  8. CIPRO [Concomitant]
     Active Substance: CIPROFLOXACIN HYDROCHLORIDE
  9. DOXYCYCLINE. [Concomitant]
     Active Substance: DOXYCYCLINE
  10. OCALIVA [Suspect]
     Active Substance: OBETICHOLIC ACID
     Dosage: 5 MG, 2X/WK
     Route: 048
     Dates: start: 20190301
  11. URSODIOL. [Concomitant]
     Active Substance: URSODIOL
     Indication: PRIMARY BILIARY CHOLANGITIS
     Dosage: 900 MG, QD
     Route: 048
  12. COREG [Concomitant]
     Active Substance: CARVEDILOL
     Dosage: 3.125 MG, 2X/WK
  13. DULOXETINE HCL [Concomitant]
     Active Substance: DULOXETINE HYDROCHLORIDE
  14. BENADRYL [Concomitant]
     Active Substance: DIPHENHYDRAMINE HYDROCHLORIDE
  15. TIOTROPIUM BROMIDE MONOHYDRATE [Concomitant]
     Active Substance: TIOTROPIUM BROMIDE MONOHYDRATE
  16. EXCEDRIN EXTRA STRENGTH [Concomitant]
     Active Substance: ACETAMINOPHEN\ASPIRIN\CAFFEINE
  17. CARVEDILOL. [Concomitant]
     Active Substance: CARVEDILOL
  18. FERRIC CARBOXYMALTOSE [Concomitant]
     Active Substance: FERRIC CARBOXYMALTOSE
  19. VITAMIN D2 [Concomitant]
     Active Substance: ERGOCALCIFEROL
  20. ONDANSETRON [Concomitant]
     Active Substance: ONDANSETRON
  21. CHOLESTYRAMINE. [Concomitant]
     Active Substance: CHOLESTYRAMINE
  22. XIFAXAN [Concomitant]
     Active Substance: RIFAXIMIN
     Dosage: 550 MG, BID
     Route: 048
     Dates: start: 20180315, end: 20180920
  23. ENSURE [Concomitant]
     Active Substance: AMINO ACIDS\DEXTROSE\ELECTROLYTES NOS\SOYBEAN OIL\VITAMINS
  24. CLONIDINE HCL [Concomitant]
     Active Substance: CLONIDINE HYDROCHLORIDE
  25. METHADONE HCL [Concomitant]
     Active Substance: METHADONE HYDROCHLORIDE
  26. SERTRALINE [Concomitant]
     Active Substance: SERTRALINE HYDROCHLORIDE

REACTIONS (15)
  - Blood count abnormal [Unknown]
  - Cough [Unknown]
  - Arthralgia [Unknown]
  - Ammonia increased [Unknown]
  - Weight increased [Unknown]
  - Ascites [Unknown]
  - Regurgitation [Unknown]
  - Depression [Unknown]
  - Oesophageal varices haemorrhage [Unknown]
  - Hepatic encephalopathy [Unknown]
  - Dyspnoea [Unknown]
  - Mobility decreased [Unknown]
  - Fatigue [Unknown]
  - Product prescribing error [Unknown]
  - Loss of consciousness [Unknown]

NARRATIVE: CASE EVENT DATE: 2018
